FAERS Safety Report 12279315 (Version 2)
Quarter: 2016Q2

REPORT INFORMATION
  Report Type: Report from Study
  Country: FR (occurrence: FR)
  Receive Date: 20160418
  Receipt Date: 20160425
  Transmission Date: 20160815
  Serious: Yes (Hospitalization, Other)
  Sender: FDA-Public Use
  Company Number: PHHO2016FR005343

PATIENT
  Age: 57 Year
  Sex: Male

DRUGS (1)
  1. EVEROLIMUS [Suspect]
     Active Substance: EVEROLIMUS
     Indication: RENAL TRANSPLANT
     Dosage: UNK
     Route: 048
     Dates: end: 20150708

REACTIONS (2)
  - Hyperthermia [Recovered/Resolved]
  - Nasal cavity cancer [Recovered/Resolved]

NARRATIVE: CASE EVENT DATE: 20150810
